FAERS Safety Report 6875671-0 (Version None)
Quarter: 2010Q3

REPORT INFORMATION
  Report Type: 
  Country: None (occurrence: None)
  Receive Date: 20100727
  Receipt Date: 20100716
  Transmission Date: 20110219
  Serious: Yes (Other)
  Sender: FDA-Public Use
  Company Number: GB-PFIZER INC-2009229250

PATIENT
  Sex: Female

DRUGS (4)
  1. ATORVASTATIN CALCIUM [Suspect]
     Dosage: 20 MG, 1X/DAY
     Dates: start: 20090301, end: 20090301
  2. ATORVASTATIN CALCIUM [Suspect]
     Dosage: 40 MG, 1X/DAY
     Dates: start: 20090301, end: 20090101
  3. ATORVASTATIN CALCIUM [Suspect]
     Dosage: 20 MG, 1X/DAY
     Dates: start: 20090101
  4. EZETROL [Suspect]
     Dosage: 10 MG, 1X/DAY
     Route: 048
     Dates: start: 20090301

REACTIONS (1)
  - CONTUSION [None]
